FAERS Safety Report 10738952 (Version 2)
Quarter: 2015Q1

REPORT INFORMATION
  Report Type: Spontaneous
  Country: US (occurrence: US)
  Receive Date: 20150126
  Receipt Date: 20150218
  Transmission Date: 20150721
  Serious: Yes (Hospitalization, Other)
  Sender: FDA-Public Use
  Company Number: US-ELI_LILLY_AND_COMPANY-US201501006967

PATIENT
  Sex: Female

DRUGS (1)
  1. TRULICITY [Suspect]
     Active Substance: DULAGLUTIDE
     Indication: TYPE 2 DIABETES MELLITUS
     Dosage: 0.75 MG, WEEKLY (1/W)
     Route: 065
     Dates: start: 20141217, end: 20141218

REACTIONS (6)
  - Dehydration [Unknown]
  - Pancreatic carcinoma [Unknown]
  - Pancreatitis chronic [Unknown]
  - Hepatic failure [Unknown]
  - Acute kidney injury [Unknown]
  - Chromaturia [Unknown]

NARRATIVE: CASE EVENT DATE: 20141219
